FAERS Safety Report 4935526-5 (Version None)
Quarter: 2006Q1

REPORT INFORMATION
  Report Type: 
  Country: None (occurrence: None)
  Receive Date: 20060307
  Receipt Date: 20050826
  Transmission Date: 20060701
  Serious: Yes (Disabling)
  Sender: FDA-Public Use
  Company Number: US-GLAXOSMITHKLINE-A0571983A

PATIENT
  Sex: Male

DRUGS (6)
  1. REQUIP [Suspect]
     Indication: PARKINSON'S DISEASE
     Route: 048
     Dates: start: 20031001, end: 20050901
  2. SINEMET [Concomitant]
  3. PROVIGIL [Concomitant]
  4. INSULIN [Concomitant]
  5. ACIPHEX [Concomitant]
  6. COZAAR [Concomitant]

REACTIONS (1)
  - PATHOLOGICAL GAMBLING [None]
